FAERS Safety Report 7265850-5 (Version None)
Quarter: 2011Q1

REPORT INFORMATION
  Report Type: 
  Country: None (occurrence: None)
  Receive Date: 20110131
  Receipt Date: 20110127
  Transmission Date: 20110831
  Serious: Yes (Hospitalization, Congenital Anomaly)
  Sender: FDA-Public Use
  Company Number: A0909853A

PATIENT
  Sex: Female

DRUGS (4)
  1. LAMICTAL [Suspect]
     Indication: BIPOLAR DISORDER
     Dosage: 75MG PER DAY
     Route: 064
     Dates: start: 20090101
  2. PRENATAL VITAMINS [Concomitant]
  3. EPIDURAL [Concomitant]
  4. EFFEXOR [Suspect]
     Dosage: 300MG PER DAY
     Route: 064
     Dates: start: 20060101

REACTIONS (8)
  - ADVERSE EVENT [None]
  - DRUG EXPOSURE DURING PREGNANCY [None]
  - TREMOR [None]
  - DYSPNOEA [None]
  - CRYING [None]
  - TRANCE [None]
  - DRUG EXPOSURE VIA BREAST MILK [None]
  - TRICUSPID VALVE PROLAPSE [None]
